FAERS Safety Report 5224416-9 (Version None)
Quarter: 2007Q1

REPORT INFORMATION
  Report Type: 
  Country: None (occurrence: None)
  Receive Date: 20070130
  Receipt Date: 20070118
  Transmission Date: 20070707
  Serious: Yes (Hospitalization, Other)
  Sender: FDA-Public Use
  Company Number: CH-PFIZER INC-2006143119

PATIENT
  Sex: Male
  Weight: 68 kg

DRUGS (6)
  1. SU-011,248 [Suspect]
     Indication: GASTROINTESTINAL STROMAL TUMOUR
     Route: 048
     Dates: start: 20051222, end: 20061102
  2. SU-011,248 [Suspect]
     Route: 048
  3. FLUDEX [Concomitant]
     Route: 048
     Dates: start: 20040101, end: 20061105
  4. PANTOZOL [Concomitant]
     Route: 048
     Dates: start: 20040101
  5. APROVEL [Concomitant]
     Route: 048
     Dates: start: 20060401
  6. TAVEGYL [Concomitant]
     Route: 048
     Dates: start: 20060315

REACTIONS (3)
  - CARDIAC FAILURE [None]
  - HEPATOTOXICITY [None]
  - PULMONARY HYPERTENSION [None]
